FAERS Safety Report 21466452 (Version 1)
Quarter: 2022Q4

REPORT INFORMATION
  Report Type: Report from Study
  Country: US (occurrence: US)
  Receive Date: 20221017
  Receipt Date: 20221017
  Transmission Date: 20230113
  Serious: Yes (Other)
  Sender: FDA-Public Use
  Company Number: US-MYLANLABS-2022M1114327

PATIENT
  Sex: Female

DRUGS (1)
  1. MAGNESIUM SULFATE [Suspect]
     Active Substance: MAGNESIUM SULFATE
     Indication: Pre-eclampsia
     Dosage: UNK (INTERRUPTED MGSO4 INFUSION)
     Route: 065

REACTIONS (2)
  - Postpartum haemorrhage [Unknown]
  - Maternal exposure during pregnancy [Recovered/Resolved]
